FAERS Safety Report 6861097-2 (Version None)
Quarter: 2010Q3

REPORT INFORMATION
  Report Type: 
  Country: None (occurrence: None)
  Receive Date: 20100720
  Receipt Date: 20100713
  Transmission Date: 20110219
  Serious: Yes (Death, Hospitalization, Other)
  Sender: FDA-Public Use
  Company Number: US-SANOFI-AVENTIS-2010SA032836

PATIENT
  Age: 82 Year
  Sex: Male

DRUGS (20)
  1. LANTUS [Suspect]
     Indication: TYPE 1 DIABETES MELLITUS
     Dosage: DOSE:6 UNIT(S)
     Route: 058
     Dates: start: 20070101
  2. LANTUS [Suspect]
     Dosage: DOSE:2 UNIT(S)
     Route: 058
     Dates: start: 20100501, end: 20100601
  3. OPTICLICK [Suspect]
     Indication: TYPE 1 DIABETES MELLITUS
     Dates: start: 20070101, end: 20100101
  4. PLAVIX [Concomitant]
     Route: 065
     Dates: end: 20100101
  5. MICRO-K [Concomitant]
     Route: 065
     Dates: end: 20100101
  6. ATENOLOL [Concomitant]
     Route: 065
     Dates: end: 20100101
  7. ISOSORBIDE [Concomitant]
     Route: 065
     Dates: end: 20100101
  8. CLONIDINE [Concomitant]
     Route: 065
     Dates: end: 20100101
  9. DIOVAN HCT [Concomitant]
     Route: 065
     Dates: end: 20100101
  10. ZYPREXA [Concomitant]
     Route: 065
     Dates: end: 20100101
  11. GALANTAMINE [Concomitant]
     Indication: DEMENTIA
     Route: 065
     Dates: end: 20100101
  12. NAMENDA [Concomitant]
     Indication: DEMENTIA
     Route: 065
     Dates: end: 20100101
  13. ANTIHYPERTENSIVES [Concomitant]
     Route: 065
     Dates: end: 20100101
  14. PROVIGIL [Concomitant]
     Route: 065
     Dates: end: 20100101
  15. TRAMADOL HCL [Concomitant]
     Indication: BACK PAIN
     Route: 065
     Dates: end: 20100101
  16. CLARINEX /USA/ [Concomitant]
     Route: 065
     Dates: end: 20100101
  17. ASPIRIN [Concomitant]
     Indication: THROMBOSIS PROPHYLAXIS
     Dates: end: 20100101
  18. ACTONEL [Concomitant]
     Indication: OSTEOPOROSIS
     Route: 065
     Dates: end: 20100101
  19. GLUCAGON [Concomitant]
     Indication: BLOOD GLUCOSE DECREASED
     Route: 065
     Dates: end: 20100101
  20. HUMALOG [Concomitant]
     Route: 065
     Dates: end: 20100101

REACTIONS (4)
  - FALL [None]
  - HIP FRACTURE [None]
  - HYPOGLYCAEMIA [None]
  - PULMONARY HYPERTENSION [None]
